FAERS Safety Report 9313111 (Version 1)
Quarter: 2013Q2

REPORT INFORMATION
  Report Type: Report from Study
  Country: US (occurrence: US)
  Receive Date: 20130528
  Receipt Date: 20130528
  Transmission Date: 20140414
  Serious: No
  Sender: FDA-Public Use
  Company Number: US-ABBOTT-13P-163-1051949-00

PATIENT
  Sex: Male
  Weight: 99.88 kg

DRUGS (15)
  1. ANDROGEL 1.62% [Suspect]
     Indication: BLOOD TESTOSTERONE DECREASED
     Dosage: 2 PUMPS DAILY
     Dates: end: 2012
  2. ANDROGEL 1.62% [Suspect]
     Dates: start: 201211, end: 201212
  3. LANTUS [Concomitant]
     Indication: DIABETES MELLITUS
  4. HUMALOG [Concomitant]
     Indication: DIABETES MELLITUS
  5. METFORMIN [Concomitant]
     Indication: DIABETES MELLITUS
  6. LIPITOR [Concomitant]
     Indication: HYPERLIPIDAEMIA
  7. HYDROCHLOROTHIAZIDE [Concomitant]
     Indication: HYPERTENSION
  8. LOSARTIN [Concomitant]
     Indication: HYPERTENSION
  9. ABILIFY [Concomitant]
     Indication: DEPRESSION
  10. GABAPENTIN [Concomitant]
     Indication: PAIN IN EXTREMITY
  11. NIASPAN [Concomitant]
     Indication: HYPERLIPIDAEMIA
  12. UROXATRAL [Concomitant]
     Indication: SUPPLEMENTATION THERAPY
  13. FISH OIL [Concomitant]
     Indication: SUPPLEMENTATION THERAPY
  14. ASPIRIN [Concomitant]
     Indication: CARDIOVASCULAR EVENT PROPHYLAXIS
  15. VITAMINS [Concomitant]
     Indication: VITAMIN SUPPLEMENTATION

REACTIONS (2)
  - Hepatic enzyme increased [Unknown]
  - Prostatic specific antigen increased [Unknown]
